FAERS Safety Report 23493841 (Version 1)
Quarter: 2024Q1

REPORT INFORMATION
  Report Type: Spontaneous
  Country: US (occurrence: None)
  Receive Date: 20240206
  Receipt Date: 20240206
  Transmission Date: 20240410
  Serious: Yes (Death)
  Sender: FDA-Public Use
  Company Number: None

PATIENT
  Sex: Female

DRUGS (5)
  1. SIROLIMUS [Suspect]
     Active Substance: SIROLIMUS
     Indication: Lung transplant
     Dosage: FREQUENCY : DAILY;?
     Route: 048
     Dates: start: 202312
  2. MYCOPHENLATE ORAL SUSP [Concomitant]
  3. NIVESTYM [Concomitant]
     Active Substance: FILGRASTIM-AAFI
  4. TACROLIMUS [Concomitant]
     Active Substance: TACROLIMUS
  5. SIROLIMUS [Concomitant]
     Active Substance: SIROLIMUS

REACTIONS (1)
  - Death [None]
